FAERS Safety Report 22035058 (Version 1)
Quarter: 2023Q1

REPORT INFORMATION
  Report Type: Spontaneous
  Country: UZ (occurrence: UZ)
  Receive Date: 20230224
  Receipt Date: 20230224
  Transmission Date: 20230417
  Serious: Yes (Hospitalization)
  Sender: FDA-Public Use
  Company Number: UZ-BAYER-2023A021209

PATIENT
  Age: 3 Year
  Sex: Female

DRUGS (4)
  1. DESLORATADINE [Suspect]
     Active Substance: DESLORATADINE
     Indication: Anxiety
     Dosage: 1/4 TABLET 2 TIMES A DAY PER OS
     Route: 048
  2. CEFPODOX [Concomitant]
     Dosage: UNK
  3. FUSYS [Concomitant]
     Dosage: UNK
  4. IBUPROFEN [Concomitant]
     Active Substance: IBUPROFEN
     Dosage: UNK
     Route: 048

REACTIONS (10)
  - Toxic epidermal necrolysis [Recovering/Resolving]
  - Rash [Unknown]
  - Pruritus [Unknown]
  - Anxiety [Unknown]
  - Rash erythematous [Unknown]
  - Rash maculo-papular [Unknown]
  - Blood blister [Unknown]
  - Pneumonia [Unknown]
  - Liver disorder [Unknown]
  - Pancreatic injury [Unknown]
